FAERS Safety Report 7495775-1 (Version None)
Quarter: 2011Q2

REPORT INFORMATION
  Report Type: 
  Country: None (occurrence: None)
  Receive Date: 20110523
  Receipt Date: 20110510
  Transmission Date: 20111010
  Serious: Yes (Death, Other)
  Sender: FDA-Public Use
  Company Number: NO-ELI_LILLY_AND_COMPANY-NO201105003786

PATIENT
  Sex: Female

DRUGS (2)
  1. TRILAFON [Concomitant]
  2. ZYPREXA [Suspect]

REACTIONS (4)
  - DEATH [None]
  - ELECTROCARDIOGRAM QT PROLONGED [None]
  - DRUG INTERACTION [None]
  - SUBSTANCE ABUSE [None]
